FAERS Safety Report 14419014 (Version 6)
Quarter: 2018Q1

REPORT INFORMATION
  Report Type: Report from Study
  Country: US (occurrence: US)
  Receive Date: 20180122
  Receipt Date: 20180302
  Transmission Date: 20180509
  Serious: Yes (Death, Hospitalization)
  Sender: FDA-Public Use
  Company Number: PHEH2018US002195

PATIENT
  Age: 61 Year
  Sex: Male

DRUGS (1)
  1. PROMACTA [Suspect]
     Active Substance: ELTROMBOPAG OLAMINE
     Indication: RENAL CANCER
     Dosage: 50 MG, QD
     Route: 048
     Dates: start: 20160512

REACTIONS (6)
  - Metastases to liver [Fatal]
  - Product use in unapproved indication [Unknown]
  - Renal cell carcinoma [Fatal]
  - Metastases to bone [Fatal]
  - Pneumonia [Unknown]
  - Malignant neoplasm progression [Fatal]

NARRATIVE: CASE EVENT DATE: 20160512
